FAERS Safety Report 7969715-2 (Version None)
Quarter: 2011Q4

REPORT INFORMATION
  Report Type: 
  Country: None (occurrence: None)
  Receive Date: 20111212
  Receipt Date: 20111206
  Transmission Date: 20120403
  Serious: No
  Sender: FDA-Public Use
  Company Number: US-TEVA-287077USA

PATIENT
  Sex: Female
  Weight: 51 kg

DRUGS (21)
  1. OXYCET [Concomitant]
     Dosage: AS NECESSARY
     Route: 048
     Dates: start: 20110501
  2. DAUNORUBICIN HCL [Suspect]
     Indication: ACUTE MYELOID LEUKAEMIA
     Route: 042
     Dates: start: 20110504, end: 20110508
  3. PREFEST [Concomitant]
     Route: 048
     Dates: start: 20110503
  4. ALUMINUM HYDROXIDE GEL [Concomitant]
     Dosage: 7200 MILLIGRAM;
     Route: 048
     Dates: start: 20110505
  5. SODIUM CHLORIDE [Concomitant]
     Dates: start: 20110502
  6. ONDANSETRON [Concomitant]
     Dosage: 16 MILLIGRAM;
     Route: 048
     Dates: start: 20110507
  7. BUPIVACAINE HCL [Concomitant]
     Dosage: .25 PERCENT;
     Route: 042
     Dates: start: 20110502
  8. CYTARABINE [Suspect]
     Indication: ACUTE MYELOID LEUKAEMIA
     Dosage: 140 MILLIGRAM;
     Route: 042
     Dates: start: 20110504, end: 20110514
  9. DIPHENHYDRAMINE HCL [Concomitant]
     Dosage: 100 MILLIGRAM;
     Route: 042
     Dates: start: 20110504
  10. CEFTAZIDIME [Concomitant]
     Dosage: 6000 MILLIGRAM;
     Route: 042
  11. ACETAMINOPHEN [Concomitant]
     Indication: PAIN
     Dosage: 300 MILLIGRAM;
     Route: 048
     Dates: start: 20110501
  12. ONDANSETRON [Concomitant]
     Route: 042
     Dates: start: 20110502
  13. DEXTROSE 5% AND SODIUM CHLORIDE 0.45% IN PLASTIC CONTAINER [Concomitant]
     Route: 042
     Dates: start: 20110501
  14. FLUCONAZOLE [Concomitant]
     Dosage: 300 DOSAGE FORMS;
     Route: 048
     Dates: start: 20110504
  15. HEPARIN [Concomitant]
     Route: 042
     Dates: start: 20110502
  16. ETOPOSIDE [Suspect]
     Indication: ACUTE MYELOID LEUKAEMIA
     Dosage: 147 MILLIGRAM;
     Route: 042
     Dates: start: 20110504, end: 20110508
  17. ACETAMINOPHEN [Concomitant]
     Indication: PYREXIA
     Dosage: 2600 MILLIGRAM; AS NEEDED
     Route: 048
     Dates: start: 20110430
  18. ACETAMINOPHEN [Concomitant]
     Dosage: 2600 MILLIGRAM;
     Route: 048
     Dates: start: 20110501
  19. ALLOPURINOL [Concomitant]
     Dosage: 300 MILLIGRAM;
     Route: 048
     Dates: start: 20110501
  20. LORAZEPAM [Concomitant]
     Dates: start: 20110505
  21. HYPROMELLOSE [Concomitant]
     Dosage: 48 GTT;
     Route: 031
     Dates: end: 20110504

REACTIONS (2)
  - BACTERIAL INFECTION [None]
  - PLEURAL EFFUSION [None]
